FAERS Safety Report 6209280-3 (Version None)
Quarter: 2009Q2

REPORT INFORMATION
  Report Type: 
  Country: None (occurrence: None)
  Receive Date: 20090529
  Receipt Date: 20090529
  Transmission Date: 20091009
  Serious: Yes (Death, Hospitalization, Other)
  Sender: FDA-Public Use
  Company Number: US-ROXANE LABORATORIES, INC.-2009-RO-00532RO

PATIENT
  Sex: Female

DRUGS (6)
  1. MYCOPHENOLATE MOFETIL [Suspect]
     Indication: SYSTEMIC LUPUS ERYTHEMATOSUS
     Dosage: 2000MG
     Route: 048
     Dates: start: 20090430
  2. PREDNISONE [Suspect]
     Indication: SYSTEMIC LUPUS ERYTHEMATOSUS
     Dosage: 60MG
     Route: 048
     Dates: start: 20090430
  3. ABATACEPT [Suspect]
     Indication: SYSTEMIC LUPUS ERYTHEMATOSUS
     Route: 042
     Dates: start: 20090430
  4. PLACEBO [Suspect]
     Indication: SYSTEMIC LUPUS ERYTHEMATOSUS
     Route: 042
     Dates: start: 20090430
  5. DIPHENHYDRAMINE HCL [Concomitant]
     Indication: RESPIRATORY DISTRESS
  6. METHYLPREDNISOLONE [Concomitant]
     Indication: RESPIRATORY DISTRESS

REACTIONS (9)
  - ANGIOEDEMA [None]
  - ASTHENIA [None]
  - CARDIAC ARREST [None]
  - CELLULITIS [None]
  - DEEP VEIN THROMBOSIS [None]
  - HERPES ZOSTER [None]
  - PYREXIA [None]
  - RESPIRATORY DISTRESS [None]
  - SWOLLEN TONGUE [None]
